FAERS Safety Report 4491482-8 (Version None)
Quarter: 2004Q4

REPORT INFORMATION
  Report Type: 
  Country: None (occurrence: None)
  Receive Date: 20041103
  Receipt Date: 20041025
  Transmission Date: 20050328
  Serious: Yes (Other)
  Sender: FDA-Public Use
  Company Number: 200420704GDDC

PATIENT
  Sex: Female

DRUGS (1)
  1. KETEK [Suspect]
     Indication: PHARYNGITIS
     Route: 048
     Dates: start: 20040701, end: 20040701

REACTIONS (1)
  - AMAUROSIS FUGAX [None]
